FAERS Safety Report 15060836 (Version 1)
Quarter: 2018Q2

REPORT INFORMATION
  Report Type: Spontaneous
  Country: GB (occurrence: GB)
  Receive Date: 20180625
  Receipt Date: 20180625
  Transmission Date: 20180711
  Serious: Yes (Disabling)
  Sender: FDA-Public Use
  Company Number: GB-PFIZER INC-2018252265

PATIENT
  Age: 41 Year
  Sex: Female
  Weight: 57 kg

DRUGS (4)
  1. DOXYCYCLINE MONOHYDRATE [Suspect]
     Active Substance: DOXYCYCLINE
     Indication: SKIN INFECTION
     Dosage: UNK
     Dates: start: 20180504
  2. DERMOL /01330701/ [Concomitant]
     Dosage: UNK, (USE AS DIRECTED)
     Dates: start: 20180306, end: 20180320
  3. RIGEVIDON /00022701/ [Concomitant]
     Active Substance: ETHINYL ESTRADIOL\LEVONORGESTREL
     Dosage: 1 DF, UNK, (AS DIRECTED)
     Dates: start: 20171117
  4. LEVOTHYROXINE. [Concomitant]
     Active Substance: LEVOTHYROXINE
     Dosage: 1 DF, 1X/DAY
     Dates: start: 20171117

REACTIONS (4)
  - Panic reaction [Unknown]
  - Anxiety [Recovering/Resolving]
  - Paranoia [Unknown]
  - Mood altered [Unknown]

NARRATIVE: CASE EVENT DATE: 20180516
